FAERS Safety Report 7402288-1 (Version None)
Quarter: 2011Q2

REPORT INFORMATION
  Report Type: 
  Country: None (occurrence: None)
  Receive Date: 20110408
  Receipt Date: 20110331
  Transmission Date: 20111010
  Serious: Yes (Other)
  Sender: FDA-Public Use
  Company Number: US-NOVOPROD-325524

PATIENT
  Age: 53 Year
  Sex: Female

DRUGS (5)
  1. VICTOZA [Suspect]
     Dosage: 1.2 MG, QD
     Dates: start: 20101103, end: 20110114
  2. VICTOZA [Suspect]
     Dosage: 1.2 MG, QD
  3. VICTOZA [Suspect]
     Indication: TYPE 2 DIABETES MELLITUS
     Dosage: .6 MG, QD
     Route: 058
     Dates: start: 20101025
  4. VICTOZA [Suspect]
     Dosage: .6 MG, QD
     Dates: start: 20110126
  5. VICTOZA [Suspect]
     Dosage: 1.8 MG, QD
     Dates: end: 20101102

REACTIONS (1)
  - PANCREATIC CARCINOMA [None]
